FAERS Safety Report 9055527 (Version 2)
Quarter: 2013Q1

REPORT INFORMATION
  Report Type: Spontaneous
  Country: FR (occurrence: FR)
  Receive Date: 20130206
  Receipt Date: 20130321
  Transmission Date: 20140127
  Serious: Yes (Hospitalization)
  Sender: FDA-Public Use
  Company Number: FR-GLAXOSMITHKLINE-B0862819A

PATIENT
  Age: 75 None
  Sex: Male

DRUGS (8)
  1. ARIXTRA [Suspect]
     Indication: ERYSIPELAS
     Dosage: 7.5MG PER DAY
     Route: 058
     Dates: start: 201211, end: 20121114
  2. PERINDOPRIL [Suspect]
     Indication: HYPERTENSION
     Dosage: 8MG PER DAY
     Route: 048
     Dates: start: 2011, end: 20121114
  3. ALDACTAZINE [Suspect]
     Indication: HYPERTENSION
     Dosage: 50MG PER DAY
     Route: 048
     Dates: start: 2011, end: 20121114
  4. FUROSEMIDE [Concomitant]
     Indication: HYPERTENSION
     Dosage: 40MG TWICE PER DAY
     Route: 048
  5. AMLODIPINE [Concomitant]
     Indication: HYPERTENSION
     Dosage: 5MG PER DAY
     Route: 048
     Dates: start: 2011
  6. CEFTRIAXONE SODIUM [Concomitant]
     Indication: ERYSIPELAS
     Dosage: 1UNIT PER DAY
     Route: 058
     Dates: start: 201211, end: 20121110
  7. KARDEGIC [Concomitant]
     Dosage: 1SAC PER DAY
     Route: 048
  8. ZOPICLONE [Concomitant]
     Route: 048

REACTIONS (4)
  - Hyperkalaemia [Recovered/Resolved]
  - Renal impairment [Unknown]
  - Polycythaemia [Unknown]
  - Off label use [Unknown]
